FAERS Safety Report 8190179-0 (Version None)
Quarter: 2012Q1

REPORT INFORMATION
  Report Type: 
  Country: None (occurrence: None)
  Receive Date: 20120305
  Receipt Date: 20120222
  Transmission Date: 20120608
  Serious: Yes (Other)
  Sender: FDA-Public Use
  Company Number: USA/USA/12/0023197

PATIENT
  Age: 22 Year
  Sex: Female

DRUGS (6)
  1. PREDNISONE TAB [Suspect]
     Indication: IMMUNOSUPPRESSION
  2. FLUCONAZOLE [Suspect]
     Indication: MENINGITIS CRYPTOCOCCAL
     Dosage: 200 MG, 1 D,
  3. TACROLIMUS [Suspect]
     Indication: IMMUNOSUPPRESSION
  4. AMPHOTERICIN B [Suspect]
     Indication: MENINGITIS CRYPTOCOCCAL
     Dosage: 5 MG/KG/DAY,
  5. MYCOPHENOLATE MOFETIL [Suspect]
     Indication: IMMUNOSUPPRESSION
  6. FLUCYTOSINE [Suspect]
     Indication: MENINGITIS CRYPTOCOCCAL

REACTIONS (6)
  - CLONUS [None]
  - DIALYSIS [None]
  - MENINGITIS CRYPTOCOCCAL [None]
  - IMMUNE RECONSTITUTION SYNDROME [None]
  - KIDNEY TRANSPLANT REJECTION [None]
  - DRUG INEFFECTIVE [None]
